FAERS Safety Report 5289616-0 (Version None)
Quarter: 2007Q1

REPORT INFORMATION
  Report Type: 
  Country: None (occurrence: None)
  Receive Date: 20070116
  Receipt Date: 20051220
  Transmission Date: 20070707
  Serious: Yes (Other)
  Sender: FDA-Public Use
  Company Number: HQWYE214503JUN05

PATIENT
  Age: 54 Year
  Sex: Female
  Weight: 61.29 kg

DRUGS (4)
  1. PREMPRO [Suspect]
     Indication: MENOPAUSAL SYMPTOMS
  2. COMBIPATCH [Suspect]
  3. ESTRING [Suspect]
  4. FEMHRT [Suspect]

REACTIONS (1)
  - BREAST CANCER [None]
